FAERS Safety Report 9123710 (Version 1)
Quarter: 2013Q1

REPORT INFORMATION
  Report Type: Spontaneous
  Country: US (occurrence: US)
  Receive Date: 20130227
  Receipt Date: 20130227
  Transmission Date: 20140127
  Serious: Yes (Other)
  Sender: FDA-Public Use
  Company Number: US-BAYER-2013-025164

PATIENT
  Age: 67 Year
  Sex: Female
  Weight: 42.63 kg

DRUGS (5)
  1. BAYER CHEWABLE LOW DOSE BABY ASPIRIN TABLET ORANGE [Suspect]
     Dosage: 1 DF, QD
     Route: 048
     Dates: start: 2008, end: 2012
  2. BAYER GENUINE ASPIRIN ORIGINAL STRENGTH [Suspect]
     Dosage: 1 DF, QD
     Route: 048
     Dates: start: 2007, end: 2008
  3. MUSCLE RELAXANTS [Concomitant]
  4. PRAVASTATIN [Concomitant]
  5. ANTIHYPERTENSIVES [Concomitant]

REACTIONS (4)
  - Ulcer [Recovered/Resolved]
  - Chest discomfort [None]
  - Dyspnoea [None]
  - Therapeutic response unexpected [None]
